FAERS Safety Report 5612472-5 (Version None)
Quarter: 2008Q1

REPORT INFORMATION
  Report Type: 
  Country: None (occurrence: None)
  Receive Date: 20080129
  Receipt Date: 20080118
  Transmission Date: 20080703
  Serious: Yes (Other)
  Sender: FDA-Public Use
  Company Number: 2008001859

PATIENT
  Age: 43 Year
  Sex: Male
  Weight: 136.0791 kg

DRUGS (2)
  1. NEOSPORIN [Suspect]
     Indication: SUPERFICIAL INJURY OF EYE
     Dosage: A DAB SIZE 1 TIME ONLY, OPHTHALMIC
     Route: 047
     Dates: start: 20080117, end: 20080117
  2. FLUCONAZOLE [Concomitant]

REACTIONS (2)
  - APPLICATION SITE IRRITATION [None]
  - EYE DISORDER [None]
